FAERS Safety Report 20672677 (Version 1)
Quarter: 2022Q2

REPORT INFORMATION
  Report Type: Spontaneous
  Country: US (occurrence: None)
  Receive Date: 20220404
  Receipt Date: 20220404
  Transmission Date: 20220720
  Serious: No
  Sender: FDA-Public Use
  Company Number: None

PATIENT
  Sex: Male

DRUGS (1)
  1. AMOXICILLIN [Suspect]
     Active Substance: AMOXICILLIN
     Dates: start: 20220209, end: 20220228

REACTIONS (5)
  - Nausea [None]
  - Diarrhoea [None]
  - Electric shock sensation [None]
  - Hypoaesthesia [None]
  - Hypoaesthesia [None]
